FAERS Safety Report 13583529 (Version 1)
Quarter: 2017Q2

REPORT INFORMATION
  Report Type: Report from Study
  Country: US (occurrence: US)
  Receive Date: 20170526
  Receipt Date: 20170526
  Transmission Date: 20170830
  Serious: Yes (Other)
  Sender: FDA-Public Use
  Company Number: US-ROCHE-1641002

PATIENT

DRUGS (2)
  1. VELIPARIB [Suspect]
     Active Substance: VELIPARIB
     Indication: RECTAL CANCER
     Dosage: 20-400 MG
     Route: 048
  2. CAPECITABINE. [Suspect]
     Active Substance: CAPECITABINE
     Indication: RECTAL CANCER
     Dosage: 5 DAYS A WEEK FOR APPROX. 5.5 WEEKS.
     Route: 048

REACTIONS (5)
  - Pulmonary embolism [Unknown]
  - Radiation proctitis [Unknown]
  - Diarrhoea [Unknown]
  - Lymphopenia [Unknown]
  - Anaemia [Unknown]
